FAERS Safety Report 5505528-9 (Version None)
Quarter: 2007Q4

REPORT INFORMATION
  Report Type: 
  Country: None (occurrence: None)
  Receive Date: 20071102
  Receipt Date: 20071023
  Transmission Date: 20080405
  Serious: Yes (Other)
  Sender: FDA-Public Use
  Company Number: CA-SHR-CA-2007-040045

PATIENT
  Age: 8 Week
  Sex: Female

DRUGS (1)
  1. MIRENA [Suspect]
     Dosage: UNK, UNK
     Dates: start: 20071016

REACTIONS (3)
  - DRUG EXPOSURE VIA BREAST MILK [None]
  - HAEMORRHAGE NEONATAL [None]
  - NASOPHARYNGITIS [None]
